FAERS Safety Report 10258864 (Version 1)
Quarter: 2014Q2

REPORT INFORMATION
  Report Type: Spontaneous
  Country: US (occurrence: US)
  Receive Date: 20140625
  Receipt Date: 20140625
  Transmission Date: 20141212
  Serious: No
  Sender: FDA-Public Use
  Company Number: US-ASTELLAS-2013US008391

PATIENT
  Sex: Female
  Weight: 59 kg

DRUGS (3)
  1. VESICARE [Suspect]
     Indication: PRODUCT USED FOR UNKNOWN INDICATION
     Route: 048
     Dates: start: 20130717
  2. SYNTHROID [Concomitant]
     Indication: THYROID DISORDER
     Route: 048
  3. BENICAR [Concomitant]
     Indication: HYPERTENSION
     Route: 048

REACTIONS (2)
  - Drug ineffective [Unknown]
  - Micturition urgency [Unknown]
